FAERS Safety Report 8969407 (Version 1)
Quarter: 2012Q4

REPORT INFORMATION
  Report Type: 
  Country: US (occurrence: US)
  Receive Date: 20121218
  Receipt Date: 20121218
  Transmission Date: 20130627
  Serious: No
  Sender: FDA-Public Use
  Company Number: US-BRISTOL-MYERS SQUIBB COMPANY-16641334

PATIENT
  Age: 28 Year
  Sex: Male

DRUGS (1)
  1. ABILIFY [Suspect]
     Dosage: received 3rd dose,Dose reduced to 1.5 mg daily

REACTIONS (2)
  - Anxiety [Recovered/Resolved]
  - Irritability [Recovered/Resolved]
